FAERS Safety Report 22275346 (Version 2)
Quarter: 2023Q2

REPORT INFORMATION
  Report Type: Spontaneous
  Country: US (occurrence: US)
  Receive Date: 20230502
  Receipt Date: 20230613
  Transmission Date: 20230721
  Serious: No
  Sender: FDA-Public Use
  Company Number: US-002147023-NVSC2023US099933

PATIENT
  Sex: Female

DRUGS (4)
  1. MEKINIST [Suspect]
     Active Substance: TRAMETINIB DIMETHYL SULFOXIDE
     Indication: Optic nerve neoplasm
     Dosage: 2 DOSAGE FORM (2 TABLETS EVERY OTHER DAY)
     Route: 048
     Dates: start: 202302
  2. MEKINIST [Suspect]
     Active Substance: TRAMETINIB DIMETHYL SULFOXIDE
     Indication: Brain neoplasm malignant
     Dosage: 1 DOSAGE FORM (L TABLET EVERY OTHER DAY)
     Route: 048
     Dates: start: 202302
  3. MEKINIST [Suspect]
     Active Substance: TRAMETINIB DIMETHYL SULFOXIDE
     Dosage: 2 DOSAGE FORM (2 TABLETS EVERY OTHER DAY)
     Route: 048
     Dates: start: 202304
  4. MEKINIST [Suspect]
     Active Substance: TRAMETINIB DIMETHYL SULFOXIDE
     Dosage: 1 DOSAGE FORM (1 TABLET EVERY OTHER DAY)
     Route: 048
     Dates: start: 202304

REACTIONS (2)
  - Rash [Recovered/Resolved]
  - Blood creatine phosphokinase increased [Unknown]
